FAERS Safety Report 4322681-3 (Version None)
Quarter: 2004Q1

REPORT INFORMATION
  Report Type: 
  Country: None (occurrence: None)
  Receive Date: 20040319
  Receipt Date: 20040206
  Transmission Date: 20041129
  Serious: Yes (Hospitalization)
  Sender: FDA-Public Use
  Company Number: HQWYE845305FEB04

PATIENT
  Sex: Male

DRUGS (1)
  1. RAPAMUNE [Suspect]
     Indication: BLOOD CREATININE INCREASED
     Dosage: ORAL
     Route: 048

REACTIONS (2)
  - LIMB INJURY [None]
  - SKIN ULCER [None]
